FAERS Safety Report 15369948 (Version 1)
Quarter: 2018Q3

REPORT INFORMATION
  Report Type: Spontaneous
  Country: US (occurrence: US)
  Receive Date: 20180904
  Receipt Date: 20180904
  Transmission Date: 20181010
  Serious: Yes (Hospitalization)
  Sender: FDA-Public Use
  Company Number: None

PATIENT
  Age: 40 Year
  Sex: Male
  Weight: 88.3 kg

DRUGS (1)
  1. CARBOPLATIN (241240) [Suspect]
     Active Substance: CARBOPLATIN

REACTIONS (6)
  - Haemoglobin decreased [None]
  - Pseudomonas test positive [None]
  - Pyrexia [None]
  - Blood culture positive [None]
  - Staphylococcus test positive [None]
  - Neutropenia [None]

NARRATIVE: CASE EVENT DATE: 20180822
